FAERS Safety Report 9367077 (Version 2)
Quarter: 2013Q3

REPORT INFORMATION
  Report Type: Spontaneous
  Country: US (occurrence: US)
  Receive Date: 20130625
  Receipt Date: 20130709
  Transmission Date: 20140515
  Serious: Yes (Death, Other)
  Sender: FDA-Public Use
  Company Number: US-JNJFOC-20130610100

PATIENT
  Sex: 0

DRUGS (38)
  1. DOXORUBICIN [Suspect]
     Indication: ACUTE LYMPHOCYTIC LEUKAEMIA
     Dosage: CYCLES 1, 3, 5, 7 OR CYCLES 1, 4, 6,8 CONTINUOUS INFUSION 2-24 HRS DAY 4
     Route: 042
  2. CYCLOPHOSPHAMIDE [Suspect]
     Indication: ACUTE LYMPHOCYTIC LEUKAEMIA
     Dosage: CYCLES 1, 3, 5, 7 OR CYCLES 1, 4, 6, 8, OVER2 HRS EVERY 12 HRS, 6 DOSES ON DAYS 1-3
     Route: 042
  3. VINCRISTINE [Suspect]
     Indication: ACUTE LYMPHOCYTIC LEUKAEMIA
     Dosage: CYCLES 1, 3, 5, 7 OR CYCLES 1, 4, 6, 8DAYS 1, 11
     Route: 042
  4. DEXAMETHASONE [Suspect]
     Indication: ACUTE LYMPHOCYTIC LEUKAEMIA
     Dosage: CYCLES 1, 3, 5, 7 OR CYCLES 1, 4, 6, 8 DAYS 1-4, 11-14
     Route: 042
  5. RITUXIMAB [Suspect]
     Indication: ACUTE LYMPHOCYTIC LEUKAEMIA
     Dosage: CYCLES 1-4 DAYS 1, 11 IF CD20 LESS THAN OR EQUALS TO 20%
     Route: 042
  6. DAUNORUBICIN [Suspect]
     Indication: ACUTE LYMPHOCYTIC LEUKAEMIA
     Dosage: CYCLE 2 OVER 12 HRS DAYS 1-2
     Route: 042
  7. CYTARABINE [Suspect]
     Indication: PROPHYLAXIS
     Dosage: CYCLE 2, 1.5 G/M2 CONTINUOUS INFUSION DAYS 1-2
     Route: 042
  8. CYTARABINE [Suspect]
     Indication: PROPHYLAXIS
     Dosage: 3 G/M2 CYCLES 2, 4, 6, 8 OR CYCLES 3, 5, 7, 9,3 G/M2 OVER 2 HRS, EVERY 12 HRS, 4 DOSES ON DAYS 2-3
     Route: 042
  9. CYTARABINE [Suspect]
     Indication: PROPHYLAXIS
     Dosage: DAY 7 OR 8
     Route: 042
  10. CYTARABINE [Suspect]
     Indication: ACUTE LYMPHOCYTIC LEUKAEMIA
     Dosage: DAY 7 OR 8
     Route: 042
  11. CYTARABINE [Suspect]
     Indication: ACUTE LYMPHOCYTIC LEUKAEMIA
     Dosage: 3 G/M2 CYCLES 2, 4, 6, 8 OR CYCLES 3, 5, 7, 9,3 G/M2 OVER 2 HRS, EVERY 12 HRS, 4 DOSES ON DAYS 2-3
     Route: 042
  12. CYTARABINE [Suspect]
     Indication: ACUTE LYMPHOCYTIC LEUKAEMIA
     Dosage: CYCLE 2, 1.5 G/M2 CONTINUOUS INFUSION DAYS 1-2
     Route: 042
  13. METHOTREXATE [Suspect]
     Indication: PROPHYLAXIS
     Dosage: INTENSIFICATION X4
     Route: 042
  14. METHOTREXATE [Suspect]
     Indication: PROPHYLAXIS
     Dosage: CYCLES 2, 4, 6, 8 OR CYCLES 3, 5, 7, 9200 MG/M2 OVER 2 HRS THEN 800 MG/M2 OVER 22 HRS DAY 1
     Route: 042
  15. METHOTREXATE [Suspect]
     Indication: PROPHYLAXIS
     Dosage: DAY2
     Route: 042
  16. METHOTREXATE [Suspect]
     Indication: ACUTE LYMPHOCYTIC LEUKAEMIA
     Dosage: CYCLES 2, 4, 6, 8 OR CYCLES 3, 5, 7, 9200 MG/M2 OVER 2 HRS THEN 800 MG/M2 OVER 22 HRS DAY 1
     Route: 042
  17. METHOTREXATE [Suspect]
     Indication: ACUTE LYMPHOCYTIC LEUKAEMIA
     Dosage: DAY2
     Route: 042
  18. METHOTREXATE [Suspect]
     Indication: ACUTE LYMPHOCYTIC LEUKAEMIA
     Dosage: INTENSIFICATION X4
     Route: 042
  19. MESNA [Suspect]
     Indication: ACUTE LYMPHOCYTIC LEUKAEMIA
     Dosage: CONTINUOUS INFUSION DAYS 1-3
     Route: 042
  20. PREDNISONE [Suspect]
     Indication: CHEMOTHERAPY
     Dosage: CYCLE 2, DAYS 1-5
     Route: 048
  21. PREDNISONE [Suspect]
     Indication: ACUTE LYMPHOCYTIC LEUKAEMIA
     Dosage: CYCLE 2, DAYS 1-5
     Route: 048
  22. SOLU-MEDROL [Suspect]
     Indication: ACUTE LYMPHOCYTIC LEUKAEMIA
     Dosage: CYCLES 2, 4, 6, 8 OR CYCLES 3, 5, 7, 9, 6 DOSES ON DAYS 1-3
     Route: 042
  23. 6-MERCAPTOPURINE [Suspect]
     Indication: CHEMOTHERAPY
     Route: 048
  24. 6-MERCAPTOPURINE [Suspect]
     Indication: ACUTE LYMPHOCYTIC LEUKAEMIA
     Route: 048
  25. LEUCOVORIN [Suspect]
     Indication: SUPPORTIVE CARE
     Dosage: 15 MG EVERY 6 HOURS FOR 8 DOSES AFTER END METHOTREXATE
     Route: 042
  26. LEUCOVORIN [Suspect]
     Indication: ACUTE LYMPHOCYTIC LEUKAEMIA
     Dosage: 15 MG EVERY 6 HOURS FOR 8 DOSES AFTER END METHOTREXATE
     Route: 042
  27. DEXAMETHASONE [Suspect]
     Indication: ACUTE LYMPHOCYTIC LEUKAEMIA
     Dosage: CYCLES 1, 3, 5, 7 OR CYCLES 1, 4, 6, 8 DAYS 1-4, 11-14
     Route: 048
  28. VINCRISTINE [Suspect]
     Indication: CHEMOTHERAPY
     Route: 048
  29. VINCRISTINE [Suspect]
     Indication: ACUTE LYMPHOCYTIC LEUKAEMIA
     Route: 048
  30. METHOTREXATE [Suspect]
     Indication: CHEMOTHERAPY
     Route: 048
  31. METHOTREXATE [Suspect]
     Indication: ACUTE LYMPHOCYTIC LEUKAEMIA
     Route: 048
  32. L-ASPARAGINASE [Suspect]
     Indication: ACUTE LYMPHOCYTIC LEUKAEMIA
     Dosage: 20,000 UNITS DAY 2 INTO 4 WEEKLY
     Route: 042
  33. GRANULOCYTE COLONY STIMULATING FACTOR [Concomitant]
     Indication: SUPPORTIVE CARE
     Dosage: DAILY UNTIL ANC } 10 9/ L
     Route: 058
  34. PLATELET [Concomitant]
     Route: 065
  35. RASBURICASE [Concomitant]
     Indication: SUPPORTIVE CARE
     Route: 065
  36. ALLOPURINOL [Concomitant]
     Indication: SUPPORTIVE CARE
     Route: 065
  37. ACETAZOLAMIDE [Concomitant]
     Route: 065
  38. PEGFILGRASTIM [Concomitant]
     Indication: SUPPORTIVE CARE
     Route: 058

REACTIONS (12)
  - Death [Fatal]
  - Cardiovascular disorder [Fatal]
  - Myelodysplastic syndrome [Fatal]
  - Infection [Unknown]
  - Cerebrovascular accident [Unknown]
  - Infection [Unknown]
  - Acute lymphocytic leukaemia recurrent [Unknown]
  - Toxicity to various agents [Unknown]
  - Pancytopenia [Unknown]
  - Ventriculo-peritoneal shunt [Unknown]
  - Drug ineffective [Unknown]
  - Off label use [Unknown]
